FAERS Safety Report 22859935 (Version 2)
Quarter: 2023Q4

REPORT INFORMATION
  Report Type: Spontaneous
  Country: CN (occurrence: CN)
  Receive Date: 20230824
  Receipt Date: 20231006
  Transmission Date: 20240109
  Serious: Yes (Life-Threatening, Hospitalization, Other)
  Sender: FDA-Public Use
  Company Number: CN-BAYER-2023A119417

PATIENT
  Age: 37 Year
  Sex: Male

DRUGS (2)
  1. ULTRAVIST [Suspect]
     Active Substance: IOPROMIDE
     Indication: Breast scan
     Dosage: 90 ML, ONCE
     Route: 040
     Dates: start: 20230811, end: 20230811
  2. ULTRAVIST [Suspect]
     Active Substance: IOPROMIDE
     Indication: Breast mass

REACTIONS (13)
  - Anaphylactic shock [Recovering/Resolving]
  - Unresponsive to stimuli [None]
  - Cardiac arrest [Recovered/Resolved]
  - Vomiting [None]
  - Pallor [None]
  - Cyanosis [None]
  - Tachypnoea [Recovered/Resolved]
  - Blood pressure decreased [Recovered/Resolved]
  - Dyspnoea [Recovered/Resolved]
  - Blood pressure immeasurable [Recovered/Resolved]
  - Mydriasis [None]
  - Pupillary reflex impaired [Recovered/Resolved]
  - Heart rate increased [Recovering/Resolving]

NARRATIVE: CASE EVENT DATE: 20230811
